FAERS Safety Report 8130770 (Version 5)
Quarter: 2013Q4

REPORT INFORMATION
  Report Type: Spontaneous
  Country: US (occurrence: US)
  Receive Date: 20110912
  Receipt Date: 20131025
  Transmission Date: 20140711
  Serious: Yes (Hospitalization, Other)
  Sender: FDA-Public Use
  Company Number: US-BAYER-2011-082109

PATIENT
  Age: 23 Year
  Sex: Female
  Weight: 65.31 kg

DRUGS (4)
  1. YASMIN [Suspect]
     Indication: MENSTRUAL CYCLE MANAGEMENT
     Dosage: UNK
     Dates: start: 200401, end: 201103
  2. OCELLA [Suspect]
     Indication: MENSTRUATION IRREGULAR
     Dosage: UNK
     Dates: start: 200401, end: 201103
  3. OTHER ANALGESICS AND ANTIPYRETICS [Concomitant]
     Dosage: 250 MG, 250 MG, 65 MG
     Route: 048
  4. ALEVE COLD + SINUS [Concomitant]
     Dosage: 220 MG, UNK
     Route: 048

REACTIONS (8)
  - Cholecystitis chronic [None]
  - Biliary dyskinesia [None]
  - Gallbladder disorder [None]
  - Gallbladder injury [None]
  - Post gastric surgery syndrome [None]
  - Nausea [None]
  - Diarrhoea [None]
  - Abdominal pain upper [None]
